FAERS Safety Report 8893763 (Version 1)
Quarter: 2012Q4

REPORT INFORMATION
  Report Type: 
  Country: US (occurrence: US)
  Receive Date: 20121108
  Receipt Date: 20121108
  Transmission Date: 20130627
  Serious: No
  Sender: FDA-Public Use
  Company Number: US-PFIZER INC-2012276590

PATIENT
  Age: 75 Year
  Sex: Female

DRUGS (18)
  1. ZOLOFT [Suspect]
     Dosage: Take 50 MG Tab, 1 1/2 tablet daily
  2. NITROSTAT [Suspect]
     Dosage: UNK
  3. PHENOBARBITAL [Concomitant]
     Dosage: 30 mg, 1 in am 1/2 in pm
  4. ENALAPRIL MALEATE [Concomitant]
     Dosage: 10 mg, take 1/2 pill daily
  5. FUROSEMIDE [Concomitant]
     Dosage: 40 mg, 1x/day
  6. ASPIRIN CHILD [Concomitant]
     Dosage: 81 mg, 1x/day
  7. ADVAIR DISKUS [Concomitant]
     Dosage: 500-50 MCG one puff, 2x/day
  8. CENTRUM SILVER [Concomitant]
     Dosage: UNK, 1x/day
  9. PRAVACHOL [Concomitant]
     Dosage: 80 mg, take one every PM
  10. SYNTHROID [Concomitant]
     Dosage: 50 ug, 1x/day (At bedtime)
     Route: 048
  11. PRILOSEC CPDR [Concomitant]
     Dosage: 20 mg, one capsule by mouth daily 1/2 hour before the largest meal of the day
     Route: 048
  12. METOPROLOL TARTRATE [Concomitant]
     Dosage: 50 mg, take one and one half tab in AM and 1 in PM
  13. COMBIVENT [Concomitant]
     Dosage: 103-18 MCG, 2 puffs, 4x/day
  14. NITROQUICK [Concomitant]
     Indication: CHEST PAIN
     Dosage: 0.4 mg, dissolve 1 as needed for chest pain may repeat in five minute if needed
     Route: 060
  15. PROAIR HFA [Concomitant]
     Indication: SHORTNESS OF BREATH
     Dosage: 90 ug, (90 mcg) as needed
  16. CALCIUM WITH VITAMIN D [Concomitant]
     Dosage: 600-200 MG-unit Tabs, 3 tabs daily
  17. TYLENOL SINUS [Concomitant]
     Dosage: UNK, Take as directed
  18. FISH OIL [Concomitant]
     Dosage: 1200 mg, 2 caps daily

REACTIONS (1)
  - Blood cholesterol abnormal [Unknown]
